FAERS Safety Report 9695014 (Version 2)
Quarter: 2014Q2

REPORT INFORMATION
  Report Type: Report from Study
  Country: RU (occurrence: RU)
  Receive Date: 20131119
  Receipt Date: 20140401
  Transmission Date: 20141212
  Serious: Yes (Life-Threatening, Hospitalization)
  Sender: FDA-Public Use
  Company Number: RU-ROCHE-1300962

PATIENT
  Age: 3 Year
  Sex: Male
  Weight: 15 kg

DRUGS (17)
  1. TOCILIZUMAB [Suspect]
     Indication: JUVENILE IDIOPATHIC ARTHRITIS
     Dosage: FIRST INFUSION : 140 MG
     Route: 042
     Dates: start: 20111010
  2. TOCILIZUMAB [Suspect]
     Route: 042
     Dates: start: 20130912
  3. TOCILIZUMAB [Suspect]
     Route: 042
     Dates: start: 20130926
  4. TOCILIZUMAB [Suspect]
     Route: 042
     Dates: start: 20131010
  5. TOCILIZUMAB [Suspect]
     Route: 042
     Dates: start: 20131024
  6. METOJECT [Concomitant]
     Indication: JUVENILE IDIOPATHIC ARTHRITIS
     Route: 048
     Dates: start: 201202
  7. METOJECT [Concomitant]
     Route: 065
     Dates: start: 20120427
  8. METYPRED [Concomitant]
     Dosage: DOSE : 4 TO 8 MG, 12 MG DAILY (BEFORE 4 MG DAILY): 06AM 1 TABLET, 11 AM 0,5 TABLET, 2.30PM 0.5TABLET
     Route: 065
  9. NISE [Concomitant]
     Indication: NASOPHARYNGITIS
     Route: 065
     Dates: end: 201202
  10. NISE [Concomitant]
     Route: 065
     Dates: start: 201202
  11. DEXAMETHASONE [Concomitant]
     Indication: PREMEDICATION
  12. FOLIC ACID [Concomitant]
     Route: 065
     Dates: start: 201304
  13. VOLTAREN [Concomitant]
     Route: 065
     Dates: start: 201304
  14. DIPROSPAN [Concomitant]
     Route: 065
     Dates: start: 201304
  15. METHOTREXATE [Concomitant]
     Indication: JUVENILE IDIOPATHIC ARTHRITIS
     Route: 065
     Dates: start: 20101125
  16. METHOTREXATE [Concomitant]
     Route: 065
     Dates: start: 201101
  17. METHOTREXATE [Concomitant]
     Route: 065

REACTIONS (11)
  - Histiocytosis haematophagic [Recovered/Resolved]
  - Rheumatoid arthritis [Recovering/Resolving]
  - Lymphadenitis [Recovered/Resolved]
  - Drug ineffective [Unknown]
  - Synovial rupture [Recovering/Resolving]
  - Gastrooesophageal reflux disease [Unknown]
  - Nasopharyngitis [Recovered/Resolved]
  - Adrenal insufficiency [Recovered/Resolved]
  - Blood creatinine decreased [Unknown]
  - Blood lactate dehydrogenase increased [Recovering/Resolving]
  - Immunoglobulins decreased [Recovering/Resolving]
